FAERS Safety Report 16543435 (Version 2)
Quarter: 2020Q1

REPORT INFORMATION
  Report Type: Spontaneous
  Country: DE (occurrence: DE)
  Receive Date: 20190709
  Receipt Date: 20200101
  Transmission Date: 20200409
  Serious: Yes (Hospitalization)
  Sender: FDA-Public Use
  Company Number: DE-ACCORD-137679

PATIENT
  Age: 80 Year
  Sex: Male
  Weight: 87 kg

DRUGS (6)
  1. HYDROCHLOROTHIAZIDE /OLMESARTAN [Concomitant]
     Active Substance: HYDROCHLOROTHIAZIDE\OLMESARTAN MEDOXOMIL
     Dosage: 20 MG, 1-0-0, TABLET
     Route: 048
  2. ASPIRIN. [Concomitant]
     Active Substance: ASPIRIN
     Dosage: 100 MG, 1-0-0, TABLET
     Route: 048
  3. FELODIPINE. [Concomitant]
     Active Substance: FELODIPINE
     Dosage: 1-1-0, TABLET
     Route: 048
  4. ATORVASTATIN/ATORVASTATIN CALCIUM [Suspect]
     Active Substance: ATORVASTATIN CALCIUM
     Indication: PRODUCT USED FOR UNKNOWN INDICATION
     Dosage: 20 MG, 0-0-1, TABLET
     Route: 048
  5. ROXITHROMYCIN [Concomitant]
     Active Substance: ROXITHROMYCIN
     Dosage: TABLET
     Route: 048
  6. ATOSIL [Concomitant]
     Dosage: UNIQUE
     Route: 048

REACTIONS (5)
  - Hiccups [Unknown]
  - Fall [Unknown]
  - Liver function test abnormal [Unknown]
  - Cough [Unknown]
  - Dysuria [Unknown]
